FAERS Safety Report 9018417 (Version 1)
Quarter: 2013Q1

REPORT INFORMATION
  Report Type: Spontaneous
  Country: US (occurrence: None)
  Receive Date: 20130111
  Receipt Date: 20130111
  Transmission Date: 20140127
  Serious: No
  Sender: FDA-Public Use
  Company Number: None

PATIENT
  Age: 74 Year
  Sex: Male
  Weight: 81.65 kg

DRUGS (1)
  1. GLUCOPHAGE [Suspect]

REACTIONS (6)
  - Nausea [None]
  - Abdominal pain upper [None]
  - Abdominal pain upper [None]
  - Diarrhoea [None]
  - Asthenia [None]
  - Fatigue [None]
